FAERS Safety Report 8274117-8 (Version None)
Quarter: 2012Q2

REPORT INFORMATION
  Report Type: 
  Country: None (occurrence: None)
  Receive Date: 20120411
  Receipt Date: 20120405
  Transmission Date: 20120825
  Serious: Yes (Other)
  Sender: FDA-Public Use
  Company Number: FR-TEVA-330659USA

PATIENT
  Sex: Female

DRUGS (12)
  1. ASPIRIN [Concomitant]
  2. TREANDA [Suspect]
     Indication: SPLENIC MARGINAL ZONE LYMPHOMA RECURRENT
     Route: 042
     Dates: start: 20111201, end: 20120301
  3. FOLIC ACID [Concomitant]
  4. RISEDRONATE SODIUM [Concomitant]
  5. AMIODARONE HYDROCHLORIDE [Concomitant]
  6. RITUXIMAB [Suspect]
     Indication: SPLENIC MARGINAL ZONE LYMPHOMA RECURRENT
     Dates: start: 20111201
  7. VALACICLOVIR [Concomitant]
     Indication: OPPORTUNISTIC INFECTION PROPHYLAXIS
  8. BACTRIM [Concomitant]
     Indication: OPPORTUNISTIC INFECTION PROPHYLAXIS
  9. GLIMEPIRIDE [Concomitant]
  10. FUROSEMIDE [Concomitant]
  11. RAMIPRIL [Concomitant]
  12. DARBEPOETIN ALFA [Concomitant]

REACTIONS (2)
  - CHOLESTASIS [None]
  - CYTOLYTIC HEPATITIS [None]
